FAERS Safety Report 26143370 (Version 1)
Quarter: 2025Q4

REPORT INFORMATION
  Report Type: Other
  Country: EU (occurrence: EU)
  Receive Date: 20251211
  Receipt Date: 20251211
  Transmission Date: 20260117
  Serious: Yes (Other)
  Sender: ASPEN
  Company Number: EU-MLMSERVICE-20251124-PI724278-00117-1

PATIENT

DRUGS (2)
  1. DEXAMETHASONE [Suspect]
     Active Substance: DEXAMETHASONE
     Indication: T-cell type acute leukaemia
     Dosage: 1 DOSAGE FORM, FIRST DOSE
     Route: 065
  2. DEXAMETHASONE [Suspect]
     Active Substance: DEXAMETHASONE
     Indication: Leukaemic infiltration renal

REACTIONS (2)
  - Off label use [Unknown]
  - Tumour lysis syndrome [Unknown]
